FAERS Safety Report 5924931-6 (Version None)
Quarter: 2008Q4

REPORT INFORMATION
  Report Type: 
  Country: None (occurrence: None)
  Receive Date: 20081020
  Receipt Date: 20081020
  Transmission Date: 20090506
  Serious: No
  Sender: FDA-Public Use
  Company Number: None

PATIENT
  Age: 59 Year
  Sex: Female
  Weight: 74.8435 kg

DRUGS (1)
  1. LYRICA [Suspect]
     Indication: PARTIAL SEIZURES
     Dosage: 50 3X A DAY
     Dates: start: 20080502, end: 20080701

REACTIONS (9)
  - DIZZINESS [None]
  - FATIGUE [None]
  - FEELING ABNORMAL [None]
  - HEARING IMPAIRED [None]
  - IMPAIRED DRIVING ABILITY [None]
  - JUDGEMENT IMPAIRED [None]
  - OEDEMA PERIPHERAL [None]
  - SOMNOLENCE [None]
  - STUPOR [None]
